FAERS Safety Report 9606582 (Version 1)
Quarter: 2013Q4

REPORT INFORMATION
  Report Type: Spontaneous
  Country: US (occurrence: US)
  Receive Date: 20131008
  Receipt Date: 20131008
  Transmission Date: 20140711
  Serious: No
  Sender: FDA-Public Use
  Company Number: US-AMGEN-USASP2013056906

PATIENT
  Age: 75 Year
  Sex: Female

DRUGS (14)
  1. PROLIA [Suspect]
     Indication: OSTEOPOROSIS POSTMENOPAUSAL
     Dosage: UNK
     Route: 065
     Dates: start: 2013
  2. LEVOTHYROXINE [Concomitant]
     Dosage: UNK
     Route: 065
  3. ATROVENT [Concomitant]
     Route: 065
  4. IMODIUM [Concomitant]
     Dosage: UNK
     Route: 065
  5. MULTIVITAMINS [Concomitant]
     Route: 065
  6. BETAPACE [Concomitant]
     Dosage: UNK
     Route: 065
  7. SPIRIVA [Concomitant]
     Dosage: UNK
     Route: 065
  8. DESYREL [Concomitant]
     Dosage: UNK
     Route: 065
  9. DIOVAN [Concomitant]
     Dosage: UNK
     Route: 065
  10. CRESTOR [Concomitant]
     Dosage: UNK
     Route: 065
  11. BIOTIN [Concomitant]
     Dosage: UNK
     Route: 065
  12. D3 [Concomitant]
     Route: 065
  13. DEMADEX                            /01036501/ [Concomitant]
     Dosage: UNK
     Route: 065
  14. CENTRUM SILVER                     /02363801/ [Concomitant]
     Dosage: UNK
     Route: 065

REACTIONS (4)
  - Nausea [Recovered/Resolved]
  - Diarrhoea [Recovered/Resolved]
  - Gastroenteritis viral [Recovered/Resolved]
  - Asthenia [Unknown]
